FAERS Safety Report 10177245 (Version 1)
Quarter: 2014Q2

REPORT INFORMATION
  Report Type: Spontaneous
  Country: US (occurrence: US)
  Receive Date: 20140516
  Receipt Date: 20140516
  Transmission Date: 20141212
  Serious: Yes (Hospitalization)
  Sender: FDA-Public Use
  Company Number: US-GLAXOSMITHKLINE-A1071767A

PATIENT
  Age: 45 Year
  Sex: Female

DRUGS (5)
  1. VENTOLIN [Suspect]
     Indication: CHRONIC OBSTRUCTIVE PULMONARY DISEASE
     Dosage: 2PUFF TWICE PER DAY
     Route: 055
     Dates: start: 2010
  2. PRO-AIR [Concomitant]
  3. Z PACK [Concomitant]
  4. MOUTHWASH [Concomitant]
  5. UNKNOWN [Concomitant]

REACTIONS (9)
  - Throat cancer [Not Recovered/Not Resolved]
  - Hypoxia [Not Recovered/Not Resolved]
  - Cyanosis [Not Recovered/Not Resolved]
  - Pharyngeal neoplasm [Not Recovered/Not Resolved]
  - Breast mass [Not Recovered/Not Resolved]
  - Gastrooesophageal reflux disease [Not Recovered/Not Resolved]
  - Weight decreased [Unknown]
  - Obstructive airways disorder [Unknown]
  - Drug dose omission [Not Recovered/Not Resolved]
